FAERS Safety Report 24222152 (Version 1)
Quarter: 2024Q3

REPORT INFORMATION
  Report Type: Spontaneous
  Country: FR (occurrence: FR)
  Receive Date: 20240819
  Receipt Date: 20240819
  Transmission Date: 20241017
  Serious: Yes (Other)
  Sender: MYLAN
  Company Number: FR-MYLANLABS-2024M1074782

PATIENT
  Age: 35 Year
  Sex: Female

DRUGS (10)
  1. ASPIRIN [Suspect]
     Active Substance: ASPIRIN
     Indication: Placental disorder
     Dosage: UNK
     Route: 065
  2. ASPIRIN [Suspect]
     Active Substance: ASPIRIN
     Indication: Inflammation
  3. PREDNISONE [Suspect]
     Active Substance: PREDNISONE
     Indication: Placental disorder
     Dosage: UNK
     Route: 065
  4. PREDNISONE [Suspect]
     Active Substance: PREDNISONE
     Indication: Inflammation
  5. METHYLDOPA [Suspect]
     Active Substance: METHYLDOPA
     Indication: Placental disorder
     Dosage: UNK
     Route: 065
  6. METHYLDOPA [Suspect]
     Active Substance: METHYLDOPA
     Indication: Inflammation
  7. HYDROXYCHLOROQUINE [Suspect]
     Active Substance: HYDROXYCHLOROQUINE
     Indication: Placental disorder
     Dosage: UNK
     Route: 065
  8. HYDROXYCHLOROQUINE [Suspect]
     Active Substance: HYDROXYCHLOROQUINE
     Indication: Inflammation
  9. HEPARIN [Suspect]
     Active Substance: HEPARIN SODIUM
     Indication: Placental disorder
     Dosage: UNK
     Route: 065
  10. HEPARIN [Suspect]
     Active Substance: HEPARIN SODIUM
     Indication: Inflammation

REACTIONS (3)
  - Treatment failure [Unknown]
  - Maternal exposure during pregnancy [Recovered/Resolved]
  - Off label use [Unknown]
